FAERS Safety Report 6548971-1 (Version None)
Quarter: 2010Q1

REPORT INFORMATION
  Report Type: 
  Country: None (occurrence: None)
  Receive Date: 20100125
  Receipt Date: 20100113
  Transmission Date: 20100710
  Serious: Yes (Hospitalization, Other)
  Sender: FDA-Public Use
  Company Number: US-BAYER-US-2007-029660

PATIENT
  Age: 54 Year
  Sex: Female
  Weight: 77 kg

DRUGS (5)
  1. BETASERON [Suspect]
     Indication: MULTIPLE SCLEROSIS
     Dosage: TOTAL DAILY DOSE: 8 MIU
     Route: 058
     Dates: start: 20070323
  2. PREMARIN [Concomitant]
     Dosage: UNK, UNK
     Route: 048
  3. ZYPREXA [Concomitant]
     Dosage: UNK, UNK
     Route: 048
  4. VALIUM [Concomitant]
     Dosage: UNK, UNK
     Route: 048
  5. METHADONE [Concomitant]
     Dosage: UNK, UNK
     Route: 048

REACTIONS (4)
  - HOMICIDAL IDEATION [None]
  - OVERDOSE [None]
  - PARANOIA [None]
  - SUICIDAL IDEATION [None]
